FAERS Safety Report 5068378-6 (Version None)
Quarter: 2006Q3

REPORT INFORMATION
  Report Type: 
  Country: None (occurrence: None)
  Receive Date: 20060802
  Receipt Date: 20050829
  Transmission Date: 20061208
  Serious: No
  Sender: FDA-Public Use
  Company Number: US-BRISTOL-MYERS SQUIBB COMPANY-13093166

PATIENT
  Age: 68 Year
  Sex: Male
  Weight: 85 kg

DRUGS (6)
  1. WARFARIN SODIUM [Suspect]
     Indication: THROMBOSIS
     Route: 048
     Dates: start: 20050815
  2. LANTUS [Concomitant]
  3. HUMALOG [Concomitant]
  4. ALLOPURINOL [Concomitant]
  5. LIPITOR [Concomitant]
  6. LEVOTHYROXINE SODIUM [Concomitant]

REACTIONS (1)
  - BLOOD GLUCOSE INCREASED [None]
